FAERS Safety Report 11121232 (Version 5)
Quarter: 2015Q4

REPORT INFORMATION
  Report Type: Report from Study
  Country: FR (occurrence: FR)
  Receive Date: 20150519
  Receipt Date: 20151113
  Transmission Date: 20160304
  Serious: Yes (Hospitalization)
  Sender: FDA-Public Use
  Company Number: FR-BIOGENIDEC-2015BI061195

PATIENT
  Age: 52 Year
  Sex: Female
  Weight: 57 kg

DRUGS (7)
  1. BIIB017 [Suspect]
     Active Substance: PEGINTERFERON BETA-1A
     Indication: MULTIPLE SCLEROSIS
     Route: 058
     Dates: start: 20121025, end: 20150408
  2. BIIB017 [Suspect]
     Active Substance: PEGINTERFERON BETA-1A
     Indication: MULTIPLE SCLEROSIS
     Dates: start: 20150508
  3. LAROXYL [Concomitant]
     Active Substance: AMITRIPTYLINE
  4. DAFALGAN [Concomitant]
     Active Substance: ACETAMINOPHEN
  5. CYMBALTA [Concomitant]
     Active Substance: DULOXETINE HYDROCHLORIDE
  6. NOCTOMID [Concomitant]
  7. LEXOMIL [Concomitant]
     Active Substance: BROMAZEPAM

REACTIONS (1)
  - Colitis ulcerative [Recovered/Resolved]

NARRATIVE: CASE EVENT DATE: 20150408
